FAERS Safety Report 25136398 (Version 1)
Quarter: 2025Q1

REPORT INFORMATION
  Report Type: Spontaneous
  Country: CO (occurrence: CO)
  Receive Date: 20250328
  Receipt Date: 20250328
  Transmission Date: 20250409
  Serious: Yes (Hospitalization, Other)
  Sender: NOVO NORDISK
  Company Number: CO-NOVOPROD-1395250

PATIENT
  Age: 60 Year
  Sex: Female
  Weight: 82 kg

DRUGS (4)
  1. OZEMPIC [Suspect]
     Active Substance: SEMAGLUTIDE
     Dosage: 05 MG, QW (RESUMED)
     Route: 058
     Dates: end: 202406
  2. OZEMPIC [Suspect]
     Active Substance: SEMAGLUTIDE
     Indication: Type 2 diabetes mellitus
     Dosage: 0.5 MG, QW
     Route: 058
  3. ROSUVASTATIN [Concomitant]
     Active Substance: ROSUVASTATIN
     Indication: Blood triglycerides abnormal
  4. ROSUVASTATIN [Concomitant]
     Active Substance: ROSUVASTATIN
     Indication: Blood cholesterol abnormal
     Route: 048

REACTIONS (5)
  - Chest pain [Unknown]
  - Dyspnoea [Unknown]
  - Arteriospasm coronary [Unknown]
  - Urinary incontinence [Unknown]
  - Anal incontinence [Unknown]
